FAERS Safety Report 10216039 (Version 1)
Quarter: 2014Q2

REPORT INFORMATION
  Report Type: Spontaneous
  Country: JP (occurrence: JP)
  Receive Date: 20140604
  Receipt Date: 20140604
  Transmission Date: 20141212
  Serious: Yes (Hospitalization)
  Sender: FDA-Public Use
  Company Number: JP-MYLANLABS-2014S1012336

PATIENT
  Age: 11 Year
  Sex: Female

DRUGS (5)
  1. CARBOPLATIN [Suspect]
     Indication: OSTEOSARCOMA
     Route: 041
  2. IFOMIDE [Suspect]
     Indication: OSTEOSARCOMA
     Route: 042
  3. DOXORUBICIN [Suspect]
     Indication: OSTEOSARCOMA
     Route: 041
  4. METHOTREXATE [Suspect]
     Indication: OSTEOSARCOMA
     Route: 041
  5. CISPLATIN [Suspect]
     Indication: OSTEOSARCOMA
     Route: 041

REACTIONS (2)
  - Zygomycosis [Recovered/Resolved]
  - Pneumonia [Recovered/Resolved]
